FAERS Safety Report 12293844 (Version 1)
Quarter: 2016Q2

REPORT INFORMATION
  Report Type: Other
  Country: None (occurrence: TW)
  Receive Date: 20160422
  Receipt Date: 20160422
  Transmission Date: 20160815
  Serious: Yes (Hospitalization, Other)
  Sender: FDA-Public Use
  Company Number: TW-POPULATION COUNCIL, INC.-1050863

PATIENT
  Age: 47 Year
  Sex: Female

DRUGS (1)
  1. NORPLANT [Suspect]
     Active Substance: LEVONORGESTREL
     Indication: CONTRACEPTION
     Route: 058

REACTIONS (2)
  - Hepatic adenoma [None]
  - Haemangioma of liver [None]
